FAERS Safety Report 9789255 (Version 2)
Quarter: 2014Q1

REPORT INFORMATION
  Report Type: Spontaneous
  Country: FR (occurrence: FR)
  Receive Date: 20131230
  Receipt Date: 20140218
  Transmission Date: 20141002
  Serious: Yes (Other)
  Sender: FDA-Public Use
  Company Number: FR-MYLANLABS-2013S1028386

PATIENT
  Age: 13 Year
  Sex: Male

DRUGS (3)
  1. CETIRIZINE [Suspect]
     Indication: ASTHMA
  2. SINGULAIR [Concomitant]
     Indication: ASTHMA
  3. SERETIDE [Concomitant]
     Indication: ASTHMA

REACTIONS (2)
  - Haematochezia [Not Recovered/Not Resolved]
  - Dysuria [Not Recovered/Not Resolved]
